FAERS Safety Report 5872408-9 (Version None)
Quarter: 2008Q3

REPORT INFORMATION
  Report Type: 
  Country: None (occurrence: None)
  Receive Date: 20080902
  Receipt Date: 20080818
  Transmission Date: 20090109
  Serious: Yes (Death)
  Sender: FDA-Public Use
  Company Number: 2008002044

PATIENT
  Sex: Male

DRUGS (5)
  1. TARCEVA [Suspect]
     Indication: NON-SMALL CELL LUNG CANCER
     Dosage: (150 MG, QD) ,ORAL
     Route: 048
     Dates: start: 20070301, end: 20070530
  2. AZATHIOPRINE [Suspect]
  3. VALPROATE SODIUM [Concomitant]
  4. ITRACONAZOLE [Concomitant]
  5. PYRIDOSTIGMINE (PYRIDOSTIGMINE) [Concomitant]

REACTIONS (6)
  - HAEMATURIA [None]
  - HAEMOPTYSIS [None]
  - METASTASIS [None]
  - PLATELET COUNT DECREASED [None]
  - RED BLOOD CELL COUNT DECREASED [None]
  - WHITE BLOOD CELL COUNT DECREASED [None]
